FAERS Safety Report 5785968-3 (Version None)
Quarter: 2008Q2

REPORT INFORMATION
  Report Type: 
  Country: None (occurrence: None)
  Receive Date: 20080624
  Receipt Date: 20080610
  Transmission Date: 20081010
  Serious: Yes (Other)
  Sender: FDA-Public Use
  Company Number: PHHY2008JP10508

PATIENT
  Age: 65 Year
  Sex: Female

DRUGS (2)
  1. ZOMETA [Suspect]
     Indication: METASTASES TO BONE
     Dosage: UNK
     Route: 042
     Dates: start: 20070801, end: 20080201
  2. ZOMETA [Suspect]
     Dosage: UNK
     Route: 042
     Dates: start: 20080401

REACTIONS (2)
  - OSTEOMYELITIS [None]
  - TOOTHACHE [None]
